FAERS Safety Report 23982318 (Version 1)
Quarter: 2024Q2

REPORT INFORMATION
  Report Type: Spontaneous
  Country: GB (occurrence: GB)
  Receive Date: 20240617
  Receipt Date: 20240617
  Transmission Date: 20240715
  Serious: Yes (Other)
  Sender: FDA-Public Use
  Company Number: GB-AMERICAN REGENT INC-2024002272

PATIENT
  Age: 33 Year
  Sex: Female
  Weight: 53 kg

DRUGS (4)
  1. FERINJECT [Suspect]
     Active Substance: FERRIC CARBOXYMALTOSE
     Indication: Anaemia
     Dosage: UNK, SINGLE
     Route: 065
     Dates: start: 2019, end: 2019
  2. FERINJECT [Suspect]
     Active Substance: FERRIC CARBOXYMALTOSE
     Dosage: UNK, SINGLE
     Route: 065
     Dates: start: 2019, end: 2019
  3. FERINJECT [Suspect]
     Active Substance: FERRIC CARBOXYMALTOSE
     Dosage: THIRD INFUSION (1000 DOSAGE FORM)
     Dates: start: 20240524, end: 20240524
  4. LEVOTHYROXINE [Concomitant]
     Active Substance: LEVOTHYROXINE\LEVOTHYROXINE SODIUM
     Indication: Thyroid disorder
     Dosage: UNK
     Route: 065

REACTIONS (8)
  - Malaise [Recovering/Resolving]
  - Rash [Recovering/Resolving]
  - Vomiting [Recovering/Resolving]
  - Headache [Recovering/Resolving]
  - Urticaria [Recovering/Resolving]
  - Abdominal pain upper [Recovering/Resolving]
  - Blister [Unknown]
  - Contraindicated product administered [Unknown]

NARRATIVE: CASE EVENT DATE: 20240101
